FAERS Safety Report 5307921-6 (Version None)
Quarter: 2007Q1

REPORT INFORMATION
  Report Type: 
  Country: None (occurrence: None)
  Receive Date: 20070201
  Receipt Date: 20061222
  Transmission Date: 20070707
  Serious: No
  Sender: FDA-Public Use
  Company Number: 2006PV027322

PATIENT
  Age: 75 Year
  Sex: Female
  Weight: 102.0593 kg

DRUGS (9)
  1. BYETTA [Suspect]
     Indication: DIABETES MELLITUS NON-INSULIN-DEPENDENT
     Dosage: SEE IMAGE
     Route: 058
     Dates: start: 20061031, end: 20061129
  2. BYETTA [Suspect]
     Indication: DIABETES MELLITUS NON-INSULIN-DEPENDENT
     Dosage: SEE IMAGE
     Route: 058
     Dates: start: 20061130
  3. ACTOS [Concomitant]
  4. METFORMIN HCL [Concomitant]
  5. LIPITOR [Concomitant]
  6. ZETIA [Concomitant]
  7. COZAAR [Concomitant]
  8. DILTIAZEM [Concomitant]
  9. UNKNOWN THYROID MEDICATION [Concomitant]

REACTIONS (3)
  - ARTHRALGIA [None]
  - FALL [None]
  - OEDEMA PERIPHERAL [None]
